FAERS Safety Report 24306606 (Version 2)
Quarter: 2024Q3

REPORT INFORMATION
  Report Type: Report from Study
  Country: US (occurrence: US)
  Receive Date: 20240911
  Receipt Date: 20240924
  Transmission Date: 20241016
  Serious: No
  Sender: BIOVITRUM
  Company Number: US-BIOVITRUM-2024-US-011129

PATIENT
  Age: 71 Year
  Sex: Male

DRUGS (1)
  1. KINERET [Suspect]
     Active Substance: ANAKINRA
     Indication: Product used for unknown indication
     Dosage: DAILY (QD)
     Route: 058

REACTIONS (5)
  - Drug effect less than expected [Unknown]
  - Weight decreased [Unknown]
  - Dehydration [Unknown]
  - Intentional dose omission [Unknown]
  - Pulmonary mass [Unknown]
